FAERS Safety Report 4627070-X (Version None)
Quarter: 2005Q1

REPORT INFORMATION
  Report Type: 
  Country: None (occurrence: None)
  Receive Date: 20050331
  Receipt Date: 20050324
  Transmission Date: 20050727
  Serious: Yes (Other)
  Sender: FDA-Public Use
  Company Number: 2004114155

PATIENT
  Age: 46 Year
  Sex: Female
  Weight: 110.2241 kg

DRUGS (3)
  1. CELEBREX [Suspect]
     Indication: ARTHRITIS
     Dosage: 200 MG (200 MG, 1 IN 1 D), ORAL
     Route: 048
     Dates: start: 20040101, end: 20041221
  2. PANTOPRAZOLE (PANTOPRAZOLE) [Concomitant]
  3. FEXOFENADINE HYDROCHLORIDE [Concomitant]

REACTIONS (8)
  - EYE DISCHARGE [None]
  - EYE DISORDER [None]
  - FALL [None]
  - HEADACHE [None]
  - MACULAR DEGENERATION [None]
  - MUSCLE STRAIN [None]
  - VISION BLURRED [None]
  - VISUAL ACUITY REDUCED [None]
